FAERS Safety Report 8428143-6 (Version None)
Quarter: 2012Q2

REPORT INFORMATION
  Report Type: 
  Country: None (occurrence: None)
  Receive Date: 20120611
  Receipt Date: 20120530
  Transmission Date: 20120825
  Serious: Yes (Other)
  Sender: FDA-Public Use
  Company Number: US-PFIZER INC-2012130547

PATIENT
  Sex: Female
  Weight: 66.7 kg

DRUGS (19)
  1. CLONAZEPAM [Concomitant]
     Dosage: 1 MG, ONE OR TWO TIMES A DAY
  2. CHANTIX [Suspect]
     Indication: SMOKING CESSATION THERAPY
     Dosage: 0.5 MG, 1X/DAY
     Route: 048
     Dates: start: 20120101, end: 20120101
  3. ZYRTEC [Concomitant]
     Indication: HYPERSENSITIVITY
     Dosage: 10 MG, UNK
  4. VICOPROFEN [Concomitant]
     Dosage: 7.5/200 MG, EVERY FOUR TO SIX HOURS
  5. EFFEXOR XR [Concomitant]
     Indication: DEPRESSION
     Dosage: 150 MG, UNK
  6. PSEUDOEPHEDRINE [Concomitant]
     Dosage: 30 MG, AS NEEDED
  7. FIORICET [Concomitant]
     Dosage: 225 MG, AS NEEDED
  8. MAGNESIUM [Concomitant]
     Dosage: UNK
  9. CHANTIX [Suspect]
     Dosage: 1 MG, 2X/DAY
     Route: 048
     Dates: start: 20120101, end: 20120301
  10. NEURONTIN [Concomitant]
     Dosage: 3600 MG A DAY
  11. CALCIUM CARBONATE [Suspect]
     Dosage: 1200 MG, 1X/DAY
     Route: 048
  12. NEXIUM [Suspect]
     Dosage: UNK
  13. CRANBERRY [Concomitant]
     Dosage: 4200 MG, 2X/DAY
  14. CRANBERRY [Concomitant]
     Dosage: 4200 MG, 2X/DAY
  15. VYTORIN [Concomitant]
     Dosage: 10/40 MG; UNK
  16. VYTORIN [Concomitant]
     Dosage: 10/40 MG, UNK
  17. GABAPENTIN [Concomitant]
     Dosage: UNK, TWO OR THREE TIMES A DAY
  18. POTASSIUM [Concomitant]
     Dosage: UNK
  19. NIASPAN [Concomitant]
     Dosage: 500 MG, UNK

REACTIONS (5)
  - FOOT FRACTURE [None]
  - OSTEOPOROSIS [None]
  - VOMITING [None]
  - KIDNEY INFECTION [None]
  - ABNORMAL DREAMS [None]
